FAERS Safety Report 18795754 (Version 2)
Quarter: 2021Q1

REPORT INFORMATION
  Report Type: Report from Study
  Country: FR (occurrence: FR)
  Receive Date: 20210127
  Receipt Date: 20210129
  Transmission Date: 20210419
  Serious: Yes (Hospitalization, Other)
  Sender: FDA-Public Use
  Company Number: FR-BRISTOL-MYERS SQUIBB COMPANY-BMS-2021-005206

PATIENT
  Age: 75 Year
  Sex: Male
  Weight: 64 kg

DRUGS (7)
  1. BI?TILDIEM [Concomitant]
     Active Substance: DILTIAZEM
     Indication: HYPERTENSION
     Dosage: 240 MILLIGRAM, QD
     Route: 048
     Dates: start: 2003
  2. APROVEL [Concomitant]
     Active Substance: IRBESARTAN
     Indication: HYPERTENSION
     Dosage: 75 MILLIGRAM, QD
     Route: 048
     Dates: start: 2005
  3. IKOREL [Concomitant]
     Active Substance: NICORANDIL
     Indication: PRODUCT USED FOR UNKNOWN INDICATION
     Dosage: 20 MILLIGRAM, QD
     Route: 048
     Dates: start: 2017
  4. ASPIRINE PROTECT [Concomitant]
     Active Substance: ASPIRIN
     Indication: PRODUCT USED FOR UNKNOWN INDICATION
     Dosage: 100 MILLIGRAM, QD
     Route: 048
     Dates: start: 2014
  5. APIXABAN [Suspect]
     Active Substance: APIXABAN
     Dosage: 5 MG TWICE A DAY OR 2.5 MG TWICE A DAY ACCORDING TO THE RANDOMIZATION GROUP
     Route: 048
     Dates: start: 20200721, end: 20201215
  6. APIXABAN [Suspect]
     Active Substance: APIXABAN
     Indication: EMBOLISM VENOUS
     Dosage: 5 MG TWICE A DAY OR 2.5 MG TWICE A DAY ACCORDING TO THE RANDOMIZATION GROUP
     Route: 048
     Dates: start: 20191213, end: 20200718
  7. ELISOR [Concomitant]
     Active Substance: PRAVASTATIN SODIUM
     Indication: HYPERCHOLESTEROLAEMIA
     Dosage: 40 MILLIGRAM, QD
     Route: 048
     Dates: start: 2017

REACTIONS (1)
  - Squamous cell carcinoma [Recovered/Resolved]

NARRATIVE: CASE EVENT DATE: 20200602
